FAERS Safety Report 18868487 (Version 2)
Quarter: 2021Q1

REPORT INFORMATION
  Report Type: Spontaneous
  Country: US (occurrence: US)
  Receive Date: 20210209
  Receipt Date: 20210305
  Transmission Date: 20210420
  Serious: Yes (Hospitalization, Other)
  Sender: FDA-Public Use
  Company Number: US-GENERICUS, INC.-2021GNR00002

PATIENT
  Age: 12 Year
  Sex: Female

DRUGS (2)
  1. TOBRAMYCIN. [Suspect]
     Active Substance: TOBRAMYCIN
     Dosage: 300 MG/5 ML (1 VIAL), 2X/DAY, 28 DAYS ON AND 28 DAYS OFF
     Dates: start: 202101
  2. TOBRAMYCIN. [Suspect]
     Active Substance: TOBRAMYCIN
     Indication: CYSTIC FIBROSIS
     Dosage: 300 MG/5 ML (1 VIAL), 2X/DAY, 28 DAYS ON AND 28 DAYS OFF
     Dates: start: 20190522, end: 20210116

REACTIONS (4)
  - Product dose omission issue [Recovered/Resolved]
  - Pulmonary fibrosis [Unknown]
  - Haemoptysis [Recovered/Resolved]
  - Bronchopulmonary aspergillosis allergic [Unknown]

NARRATIVE: CASE EVENT DATE: 20210116
